FAERS Safety Report 24412992 (Version 1)
Quarter: 2024Q4

REPORT INFORMATION
  Report Type: Spontaneous
  Country: US (occurrence: None)
  Receive Date: 20241008
  Receipt Date: 20241008
  Transmission Date: 20250114
  Serious: Yes (Hospitalization)
  Sender: Public
  Company Number: None

PATIENT
  Age: 43 Year
  Sex: Female
  Weight: 72 kg

DRUGS (10)
  1. PALIPERIDONE [Suspect]
     Active Substance: PALIPERIDONE
     Indication: Sleep disorder
     Dosage: OTHER QUANTITY : 30 TABLET(S);?FREQUENCY : DAILY;?
     Route: 048
     Dates: start: 20240730, end: 20240807
  2. PALIPERIDONE [Suspect]
     Active Substance: PALIPERIDONE
     Indication: Hallucination
  3. Tirepitide [Concomitant]
  4. XANAX [Concomitant]
  5. Vitamin D [Concomitant]
  6. VITAMIN C [Concomitant]
     Active Substance: ASCORBIC ACID
  7. GLUTHIONE [Concomitant]
  8. FISH OIL [Concomitant]
  9. NAC [Concomitant]
  10. BIOTIN [Concomitant]
     Active Substance: BIOTIN

REACTIONS (3)
  - Oxygen saturation decreased [None]
  - Heart rate decreased [None]
  - Loss of consciousness [None]

NARRATIVE: CASE EVENT DATE: 20240730
